FAERS Safety Report 23051085 (Version 1)
Quarter: 2023Q4

REPORT INFORMATION
  Report Type: Spontaneous
  Country: US (occurrence: US)
  Receive Date: 20231010
  Receipt Date: 20231010
  Transmission Date: 20240110
  Serious: No
  Sender: FDA-Public Use
  Company Number: US-SA-SAC20231006001403

PATIENT
  Age: 48 Year
  Sex: Female
  Weight: 86.18 kg

DRUGS (8)
  1. DUPIXENT [Suspect]
     Active Substance: DUPILUMAB
     Indication: Dermatitis atopic
     Dosage: 300 MG, QOW
     Route: 065
     Dates: start: 202109
  2. DEVICE [Concomitant]
     Active Substance: DEVICE
  3. EUCRISA [Concomitant]
     Active Substance: CRISABOROLE
  4. FISH OIL [Concomitant]
     Active Substance: FISH OIL
  5. METRONIDAZOLE [Concomitant]
     Active Substance: METRONIDAZOLE
  6. VITAMIN C [Concomitant]
     Active Substance: ASCORBIC ACID
  7. VITAMIN D3 [Concomitant]
     Active Substance: CHOLECALCIFEROL
  8. PHYTOSTEROLS [Concomitant]
     Active Substance: PHYTOSTEROLS

REACTIONS (1)
  - Rosacea [Unknown]

NARRATIVE: CASE EVENT DATE: 20230101
